FAERS Safety Report 18196270 (Version 1)
Quarter: 2020Q3

REPORT INFORMATION
  Report Type: Spontaneous
  Country: US (occurrence: US)
  Receive Date: 20200825
  Receipt Date: 20200825
  Transmission Date: 20201103
  Serious: No
  Sender: FDA-Public Use
  Company Number: None

PATIENT
  Age: 32 Year
  Sex: Female
  Weight: 72.5 kg

DRUGS (4)
  1. IRON SUCROSE 300MG IV ONCE [Concomitant]
     Dates: start: 20200817, end: 20200817
  2. VEKLURY [Suspect]
     Active Substance: REMDESIVIR
     Indication: COVID-19
     Route: 041
     Dates: start: 20200816, end: 20200818
  3. DEXAMETHASONE 6MG IV/PO DAILY [Concomitant]
     Dates: start: 20200816, end: 20200820
  4. ENOXAPARIN 40MG SQ DAILY [Concomitant]
     Dates: start: 20200816, end: 20200820

REACTIONS (2)
  - Liver function test increased [None]
  - Alanine aminotransferase increased [None]

NARRATIVE: CASE EVENT DATE: 20200818
